FAERS Safety Report 9007565 (Version 1)
Quarter: 2013Q1

REPORT INFORMATION
  Report Type: Spontaneous
  Country: US (occurrence: US)
  Receive Date: 20130111
  Receipt Date: 20130111
  Transmission Date: 20140127
  Serious: Yes (Other)
  Sender: FDA-Public Use
  Company Number: US-009507513-0909USA03424

PATIENT
  Age: 18 Year
  Sex: Female
  Weight: 70.31 kg

DRUGS (1)
  1. SINGULAIR [Suspect]
     Indication: ASTHMA
     Dosage: 10 MG, QD
     Route: 048
     Dates: start: 20090310, end: 20090313

REACTIONS (6)
  - Cough [Unknown]
  - Loss of consciousness [Unknown]
  - Migraine [Unknown]
  - Oropharyngeal pain [Unknown]
  - Sudden hearing loss [Unknown]
  - Epistaxis [Unknown]
